FAERS Safety Report 5759796-9 (Version None)
Quarter: 2008Q2

REPORT INFORMATION
  Report Type: 
  Country: None (occurrence: None)
  Receive Date: 20080605
  Receipt Date: 20080529
  Transmission Date: 20081010
  Serious: Yes (Other)
  Sender: FDA-Public Use
  Company Number: B0523632A

PATIENT
  Age: 42 Year
  Sex: Female
  Weight: 60 kg

DRUGS (2)
  1. WELLBUTRIN [Suspect]
     Indication: DEPRESSION
     Dosage: 150MG PER DAY
     Route: 065
     Dates: start: 20080409, end: 20080423
  2. DOMINAL FORTE [Concomitant]
     Indication: INSOMNIA
     Dosage: 20MG PER DAY

REACTIONS (2)
  - FATIGUE [None]
  - HYPERSEXUALITY [None]
